FAERS Safety Report 7715187-2 (Version None)
Quarter: 2011Q3

REPORT INFORMATION
  Report Type: 
  Country: None (occurrence: None)
  Receive Date: 20110829
  Receipt Date: 20110823
  Transmission Date: 20111222
  Serious: Yes (Other)
  Sender: FDA-Public Use
  Company Number: IN-BRISTOL-MYERS SQUIBB COMPANY-16008591

PATIENT
  Age: 35 Year
  Sex: Male

DRUGS (1)
  1. ERBITUX [Suspect]
     Dosage: ALSO 400MG/M2

REACTIONS (3)
  - DEEP VEIN THROMBOSIS [None]
  - ARTERIAL THROMBOSIS LIMB [None]
  - SKIN REACTION [None]
